FAERS Safety Report 7412924-1 (Version None)
Quarter: 2011Q2

REPORT INFORMATION
  Report Type: 
  Country: None (occurrence: None)
  Receive Date: 20110413
  Receipt Date: 20110408
  Transmission Date: 20111010
  Serious: Yes (Hospitalization)
  Sender: FDA-Public Use
  Company Number: US-BAYER-201036821NA

PATIENT
  Age: 37 Year
  Sex: Female
  Weight: 91 kg

DRUGS (8)
  1. YAZ [Suspect]
     Indication: CONTRACEPTION
     Dates: start: 20071019
  2. UNKNOWN [Concomitant]
     Indication: PRODUCT USED FOR UNKNOWN INDICATION
     Dosage: UNK
     Dates: start: 20080201, end: 20091101
  3. SYNTHROID [Concomitant]
     Indication: HYPOTHYROIDISM
  4. ASMANEX TWISTHALER [Concomitant]
     Indication: ASTHMA
     Dates: start: 20080623
  5. YASMIN [Suspect]
     Indication: CONTRACEPTION
     Dates: start: 20061024
  6. SEASONALE [Concomitant]
  7. YAZ [Suspect]
     Dosage: UNK
     Dates: start: 20060101, end: 20080101
  8. YASMIN [Suspect]
     Dosage: UNK
     Dates: start: 20050101, end: 20060101

REACTIONS (12)
  - ERUCTATION [None]
  - ABDOMINAL PAIN UPPER [None]
  - CHOLELITHIASIS [None]
  - NAUSEA [None]
  - FEAR OF DEATH [None]
  - BILIARY COLIC [None]
  - INJURY [None]
  - PAIN [None]
  - ABDOMINAL PAIN [None]
  - DEPRESSION [None]
  - NERVOUSNESS [None]
  - EMOTIONAL DISTRESS [None]
